FAERS Safety Report 6728465-0 (Version None)
Quarter: 2010Q2

REPORT INFORMATION
  Report Type: 
  Country: None (occurrence: None)
  Receive Date: 20100517
  Receipt Date: 20100506
  Transmission Date: 20101027
  Serious: Yes (Hospitalization, Other)
  Sender: FDA-Public Use
  Company Number: US-AMGEN-KDL411022

PATIENT
  Sex: Female

DRUGS (1)
  1. ENBREL [Suspect]
     Indication: PSORIATIC ARTHROPATHY
     Dates: start: 20040211

REACTIONS (7)
  - AMNESIA [None]
  - ASCITES [None]
  - CHEST PAIN [None]
  - CHOLECYSTECTOMY [None]
  - CONFUSIONAL STATE [None]
  - MACULAR DEGENERATION [None]
  - PERITONEAL MESOTHELIOMA MALIGNANT [None]
